FAERS Safety Report 24637711 (Version 2)
Quarter: 2024Q4

REPORT INFORMATION
  Report Type: Spontaneous
  Country: US (occurrence: US)
  Receive Date: 20241119
  Receipt Date: 20241211
  Transmission Date: 20250115
  Serious: No
  Sender: PFIZER
  Company Number: US-PFIZER INC-PV202400147776

PATIENT
  Age: 71 Year
  Sex: Female
  Weight: 77.279 kg

DRUGS (2)
  1. LORBRENA [Suspect]
     Active Substance: LORLATINIB
     Indication: Lung neoplasm malignant
     Dosage: 100 MG, DAILY
     Route: 048
  2. LORBRENA [Suspect]
     Active Substance: LORLATINIB
     Indication: Localised oedema
     Dosage: 75 MG, DAILY
     Route: 048

REACTIONS (2)
  - Oedema peripheral [Unknown]
  - Peripheral swelling [Unknown]
